FAERS Safety Report 7365611-2 (Version None)
Quarter: 2011Q1

REPORT INFORMATION
  Report Type: 
  Country: None (occurrence: None)
  Receive Date: 20110322
  Receipt Date: 20110316
  Transmission Date: 20110831
  Serious: Yes (Life-Threatening, Hospitalization)
  Sender: FDA-Public Use
  Company Number: AT-BAYER-2010-006270

PATIENT
  Sex: Female
  Weight: 62.132 kg

DRUGS (1)
  1. YAZ [Suspect]
     Indication: ORAL CONTRACEPTION
     Dosage: UNK
     Route: 048
     Dates: start: 20040101, end: 20101005

REACTIONS (2)
  - PULMONARY EMBOLISM [None]
  - CHEST PAIN [None]
